FAERS Safety Report 21199352 (Version 2)
Quarter: 2022Q4

REPORT INFORMATION
  Report Type: Spontaneous
  Country: PT (occurrence: PT)
  Receive Date: 20220811
  Receipt Date: 20221109
  Transmission Date: 20230113
  Serious: Yes (Other)
  Sender: FDA-Public Use
  Company Number: PT-CELLTRION INC.-2021PT013055

PATIENT

DRUGS (3)
  1. INFLIXIMAB [Suspect]
     Active Substance: INFLIXIMAB
     Indication: Crohn^s disease
     Dosage: UNK
  2. ADALIMUMAB [Suspect]
     Active Substance: ADALIMUMAB
     Indication: Crohn^s disease
  3. AZATHIOPRINE [Suspect]
     Active Substance: AZATHIOPRINE
     Indication: Crohn^s disease
     Dosage: INITIALLY 34.4% OF PATIENTS WERE TREATED WITH AZATHIOPRINE MONOTHERAPY

REACTIONS (4)
  - Adenocarcinoma [Unknown]
  - Squamous cell carcinoma [Unknown]
  - Therapy partial responder [Unknown]
  - Treatment failure [Unknown]
